FAERS Safety Report 9930351 (Version 1)
Quarter: 2014Q1

REPORT INFORMATION
  Report Type: Spontaneous
  Country: US (occurrence: US)
  Receive Date: 20140227
  Receipt Date: 20140227
  Transmission Date: 20141002
  Serious: No
  Sender: FDA-Public Use
  Company Number: US-AMGEN-USASP2013082570

PATIENT
  Age: 17 Year
  Sex: Female
  Weight: 56.69 kg

DRUGS (6)
  1. ENBREL [Suspect]
     Indication: PRODUCT USED FOR UNKNOWN INDICATION
     Dosage: 50 MG, QWK
     Route: 058
  2. TRAMADOL HCL [Concomitant]
     Dosage: 50 MG, UNK
  3. ALEVE [Concomitant]
     Dosage: 220 MG, UNK
  4. CELEXA                             /00582602/ [Concomitant]
     Dosage: 10 MG, UNK
  5. GABAPENTIN [Concomitant]
     Dosage: 100 MG, UNK
  6. SEASONIQUE [Concomitant]
     Dosage: UNK

REACTIONS (1)
  - Injection site pain [Unknown]
